FAERS Safety Report 8490642-9 (Version None)
Quarter: 2012Q3

REPORT INFORMATION
  Report Type: 
  Country: None (occurrence: None)
  Receive Date: 20120705
  Receipt Date: 20120626
  Transmission Date: 20120928
  Serious: Yes (Hospitalization)
  Sender: FDA-Public Use
  Company Number: US-CELGENEUS-163-21880-12061055

PATIENT
  Sex: Female
  Weight: 81.72 kg

DRUGS (3)
  1. LOVASTATIN [Concomitant]
     Route: 065
  2. REVLIMID [Suspect]
     Indication: MULTIPLE MYELOMA
     Dosage: 25 MILLIGRAM
     Route: 048
     Dates: start: 20120418, end: 20120508
  3. QUINAPRIL [Concomitant]
     Route: 065

REACTIONS (2)
  - PNEUMONITIS [None]
  - RASH MACULO-PAPULAR [None]
